FAERS Safety Report 7949794-9 (Version None)
Quarter: 2011Q4

REPORT INFORMATION
  Report Type: 
  Country: None (occurrence: None)
  Receive Date: 20111130
  Receipt Date: 20111117
  Transmission Date: 20120403
  Serious: Yes (Other)
  Sender: FDA-Public Use
  Company Number: GR-MERCK-1111USA02661

PATIENT
  Age: 75 Year
  Sex: Male
  Weight: 50 kg

DRUGS (8)
  1. TENOFOVIR [Concomitant]
     Indication: HIV INFECTION
     Route: 065
     Dates: start: 20080901
  2. RITONAVIR [Concomitant]
     Indication: HIV INFECTION
     Route: 065
     Dates: start: 20080901
  3. PLAVIX [Concomitant]
     Indication: CORONARY ARTERY DISEASE
     Route: 065
  4. LOPRESSOR [Concomitant]
     Indication: CORONARY ARTERY DISEASE
     Route: 065
  5. SALOSPIR [Concomitant]
     Indication: CORONARY ARTERY DISEASE
     Route: 065
  6. ISENTRESS [Suspect]
     Indication: HIV INFECTION
     Route: 048
     Dates: start: 20080901
  7. ATAZANAVIR [Concomitant]
     Indication: HIV INFECTION
     Route: 065
     Dates: start: 20080901
  8. VASTAREL [Concomitant]
     Indication: CORONARY ARTERY DISEASE
     Route: 065

REACTIONS (3)
  - BLADDER NEOPLASM [None]
  - METASTASES TO LUNG [None]
  - NEOPLASM MALIGNANT [None]
